FAERS Safety Report 12273877 (Version 1)
Quarter: 2016Q2

REPORT INFORMATION
  Report Type: Spontaneous
  Country: US (occurrence: US)
  Receive Date: 20160415
  Receipt Date: 20160415
  Transmission Date: 20160815
  Serious: No
  Sender: FDA-Public Use
  Company Number: US-ALLERGAN-1504626US

PATIENT
  Age: 55 Year
  Sex: Male

DRUGS (2)
  1. LATISSE [Suspect]
     Active Substance: BIMATOPROST
     Indication: PRODUCT USED FOR UNKNOWN INDICATION
     Dosage: UNK
  2. LATISSE [Suspect]
     Active Substance: BIMATOPROST
     Dosage: UNK, QOD

REACTIONS (3)
  - Inappropriate schedule of drug administration [Unknown]
  - Erythema [Unknown]
  - Eye swelling [Unknown]
